FAERS Safety Report 5700595-1 (Version None)
Quarter: 2008Q2

REPORT INFORMATION
  Report Type: 
  Country: None (occurrence: None)
  Receive Date: 20080409
  Receipt Date: 20080409
  Transmission Date: 20081010
  Serious: Yes (Other)
  Sender: FDA-Public Use
  Company Number: None

PATIENT
  Sex: Female
  Weight: 74.3899 kg

DRUGS (1)
  1. DARVOCET-N 100 [Suspect]
     Indication: ARTHRITIS
     Dosage: 1 Q4 PRN P.O.
     Route: 048
     Dates: start: 20080222, end: 20080227

REACTIONS (2)
  - NAUSEA [None]
  - RASH [None]
